FAERS Safety Report 5602070-1 (Version None)
Quarter: 2008Q1

REPORT INFORMATION
  Report Type: 
  Country: None (occurrence: None)
  Receive Date: 20080122
  Receipt Date: 20080107
  Transmission Date: 20080703
  Serious: Yes (Death)
  Sender: FDA-Public Use
  Company Number: MEDI-0006383

PATIENT
  Sex: Female
  Weight: 5.4 kg

DRUGS (1)
  1. SYNAGIS [Suspect]
     Dosage: 82 MG, INTRAMUSCULAR
     Route: 030
     Dates: start: 20071201, end: 20071201

REACTIONS (1)
  - HOSPITALISATION [None]
